FAERS Safety Report 13951504 (Version 1)
Quarter: 2017Q3

REPORT INFORMATION
  Report Type: Spontaneous
  Country: US (occurrence: US)
  Receive Date: 20170908
  Receipt Date: 20170908
  Transmission Date: 20171128
  Serious: No
  Sender: FDA-Public Use
  Company Number: US-JAZZ-2017-US-009602

PATIENT
  Sex: Male

DRUGS (7)
  1. XYREM [Suspect]
     Active Substance: SODIUM OXYBATE
     Indication: CATAPLEXY
     Dosage: DOSE ADJUSTMENT
     Route: 048
     Dates: start: 200910, end: 200911
  2. AMBIEN [Concomitant]
     Active Substance: ZOLPIDEM TARTRATE
  3. GLUCOPHAGE [Concomitant]
     Active Substance: METFORMIN HYDROCHLORIDE
  4. AVAPRO [Concomitant]
     Active Substance: IRBESARTAN
  5. PROVIGIL [Concomitant]
     Active Substance: MODAFINIL
  6. XYREM [Suspect]
     Active Substance: SODIUM OXYBATE
     Indication: NARCOLEPSY
     Dosage: 2.25 G, BID
     Route: 048
     Dates: start: 200909, end: 200910
  7. XYREM [Suspect]
     Active Substance: SODIUM OXYBATE
     Dosage: 4.5 G, BID
     Dates: start: 200911

REACTIONS (2)
  - Insomnia [Not Recovered/Not Resolved]
  - Wrong technique in product usage process [Unknown]
